FAERS Safety Report 8545789-5 (Version None)
Quarter: 2012Q3

REPORT INFORMATION
  Report Type: 
  Country: None (occurrence: None)
  Receive Date: 20120727
  Receipt Date: 20120719
  Transmission Date: 20120928
  Serious: Yes (Death, Hospitalization, Other)
  Sender: FDA-Public Use
  Company Number: CN-BAXTER-2012BAX012248

PATIENT
  Sex: Male

DRUGS (2)
  1. 5% GLUCOSE  INJECTION [Suspect]
     Route: 041
  2. 10% GLUCOSE  INJECTION [Suspect]
     Route: 041
     Dates: start: 20091020, end: 20091220

REACTIONS (4)
  - OLIGURIA [None]
  - PYREXIA [None]
  - DEATH [None]
  - HYPOTENSION [None]
